FAERS Safety Report 6191979-9 (Version None)
Quarter: 2009Q2

REPORT INFORMATION
  Report Type: 
  Country: None (occurrence: None)
  Receive Date: 20090515
  Receipt Date: 20090507
  Transmission Date: 20091009
  Serious: Yes (Congenital Anomaly)
  Sender: FDA-Public Use
  Company Number: A0784203A

PATIENT
  Age: 0 Year

DRUGS (1)
  1. PAXIL [Suspect]
     Indication: PANIC DISORDER
     Dosage: 60MG PER DAY
     Dates: start: 19970101

REACTIONS (2)
  - CHONDRODYSTROPHY [None]
  - DRUG EXPOSURE DURING PREGNANCY [None]
